FAERS Safety Report 24856458 (Version 1)
Quarter: 2025Q1

REPORT INFORMATION
  Report Type: Spontaneous
  Country: US (occurrence: US)
  Receive Date: 20250117
  Receipt Date: 20250117
  Transmission Date: 20250408
  Serious: Yes (Death, Other)
  Sender: INCYTE
  Company Number: US-EVENT-001242

PATIENT

DRUGS (1)
  1. NIKTIMVO [Suspect]
     Active Substance: AXATILIMAB-CSFR
     Indication: Product used for unknown indication
     Route: 065

REACTIONS (4)
  - Death [Fatal]
  - Delirium [Unknown]
  - Agitation [Unknown]
  - Restlessness [Unknown]
